FAERS Safety Report 7016123-7 (Version None)
Quarter: 2010Q3

REPORT INFORMATION
  Report Type: 
  Country: None (occurrence: None)
  Receive Date: 20100927
  Receipt Date: 20100916
  Transmission Date: 20110219
  Serious: Yes (Hospitalization)
  Sender: FDA-Public Use
  Company Number: JP-BAXTER-2010BH024075

PATIENT
  Age: 7 Year
  Sex: Male

DRUGS (16)
  1. CYCLOPHOSPHAMIDE [Suspect]
     Indication: PINEAL NEOPLASM
     Route: 041
     Dates: start: 20100616, end: 20100618
  2. CYCLOPHOSPHAMIDE [Suspect]
     Route: 041
     Dates: start: 20100512, end: 20100516
  3. CYCLOPHOSPHAMIDE [Suspect]
     Route: 041
     Dates: start: 20100412, end: 20100416
  4. CYCLOPHOSPHAMIDE [Suspect]
     Route: 041
     Dates: start: 20100309, end: 20100313
  5. METHOTREXATE SODIUM [Suspect]
     Indication: PINEAL NEOPLASM
     Route: 065
     Dates: start: 20100616, end: 20100618
  6. METHOTREXATE SODIUM [Suspect]
     Route: 065
     Dates: start: 20100512, end: 20100516
  7. METHOTREXATE SODIUM [Suspect]
     Route: 065
     Dates: start: 20100412, end: 20100416
  8. METHOTREXATE SODIUM [Suspect]
     Route: 065
     Dates: start: 20100309, end: 20100313
  9. RANDA [Suspect]
     Indication: PINEAL NEOPLASM
     Route: 041
     Dates: start: 20100616, end: 20100618
  10. RANDA [Suspect]
     Route: 041
     Dates: start: 20100512, end: 20100516
  11. RANDA [Suspect]
     Route: 041
     Dates: start: 20100412, end: 20100416
  12. RANDA [Suspect]
     Route: 041
     Dates: start: 20100309, end: 20100313
  13. ETOPOSIDE [Suspect]
     Indication: PINEAL NEOPLASM
     Route: 041
     Dates: start: 20100616, end: 20100617
  14. ETOPOSIDE [Suspect]
     Route: 041
     Dates: start: 20100512, end: 20100516
  15. ETOPOSIDE [Suspect]
     Route: 041
     Dates: start: 20100412, end: 20100416
  16. ETOPOSIDE [Suspect]
     Route: 041
     Dates: start: 20100309, end: 20100313

REACTIONS (1)
  - PANCREATITIS [None]
